FAERS Safety Report 9036269 (Version 1)
Quarter: 2013Q1

REPORT INFORMATION
  Report Type: Spontaneous
  Country: US (occurrence: None)
  Receive Date: 20130117
  Receipt Date: 20130117
  Transmission Date: 20140127
  Serious: No
  Sender: FDA-Public Use
  Company Number: None

PATIENT
  Sex: Male
  Weight: 22.8 kg

DRUGS (2)
  1. METHYL-PHENIDATE HCI ER [Suspect]
     Dosage: 40 MG, QAM, PO
     Route: 048
  2. METHYL-PHENIDATE HCI ER [Suspect]
     Dosage: 40 MG, QAM, PO
     Route: 048

REACTIONS (4)
  - Product substitution issue [None]
  - Drug effect decreased [None]
  - Disturbance in attention [None]
  - Feeling abnormal [None]
